FAERS Safety Report 8992167 (Version 1)
Quarter: 2012Q4

REPORT INFORMATION
  Report Type: Report from Study
  Country: CA (occurrence: CA)
  Receive Date: 20121231
  Receipt Date: 20121231
  Transmission Date: 20130627
  Serious: Yes (Other)
  Sender: FDA-Public Use
  Company Number: CA-ROCHE-CID000000002256478

PATIENT
  Age: 46 Year
  Sex: Female

DRUGS (1)
  1. OMALIZUMAB [Suspect]
     Indication: PRODUCT USED FOR UNKNOWN INDICATION
     Route: 058
     Dates: start: 20060509

REACTIONS (18)
  - Asthma [Not Recovered/Not Resolved]
  - Chest discomfort [Unknown]
  - Dyspnoea [Unknown]
  - Wheezing [Unknown]
  - Blood immunoglobulin E increased [Unknown]
  - Respiratory tract infection viral [Unknown]
  - Productive cough [Unknown]
  - Dysphonia [Unknown]
  - Pain [Unknown]
  - Respiratory disorder [Unknown]
  - Medication error [Unknown]
  - Insomnia [Unknown]
  - Influenza [Unknown]
  - Nasopharyngitis [Unknown]
  - Cough [Unknown]
  - Headache [Unknown]
  - Injection site reaction [Unknown]
  - Rhinorrhoea [Unknown]
